FAERS Safety Report 8785074 (Version 1)
Quarter: 2012Q4

REPORT INFORMATION
  Report Type: 
  Country: US (occurrence: US)
  Receive Date: 20120914
  Receipt Date: 20120914
  Transmission Date: 20130627
  Serious: Yes (Other)
  Sender: FDA-Public Use
  Company Number: US-SANOFI-AVENTIS-2012SA066721

PATIENT
  Sex: Male
  Weight: 113 kg

DRUGS (5)
  1. DDAVP [Suspect]
     Indication: DIABETES INSIPIDUS
     Dosage: 1 spray intranasal bid (titrated up to 1 spray tid.
     Route: 028
  2. DDAVP [Suspect]
     Indication: DIABETES INSIPIDUS
     Dosage: 1 spray intranasal tid (titrated from 1 spray bid).
     Route: 028
  3. OXYCODONE [Concomitant]
     Indication: SCOLIOSIS
     Route: 048
  4. OXYCODONE [Concomitant]
     Indication: SCHEUERMANN^S DISEASE
     Route: 048
  5. ADDERALL XR [Concomitant]
     Indication: ADD
     Route: 048

REACTIONS (2)
  - Sinus disorder [Not Recovered/Not Resolved]
  - Epistaxis [Recovered/Resolved]
